FAERS Safety Report 8469214-8 (Version None)
Quarter: 2012Q2

REPORT INFORMATION
  Report Type: 
  Country: None (occurrence: None)
  Receive Date: 20120621
  Receipt Date: 20110923
  Transmission Date: 20120825
  Serious: Yes (Death, Life-Threatening, Hospitalization, Other)
  Sender: FDA-Public Use
  Company Number: GB-023533

PATIENT
  Age: 6 Year
  Sex: Female

DRUGS (6)
  1. BUSULFAN [Suspect]
     Indication: BONE MARROW FAILURE
     Dosage: (14 MG/KG)
     Route: 048
     Dates: start: 20101108
  2. CYCLOPHOSPHAMIDE [Suspect]
     Indication: BONE MARROW FAILURE
     Dosage: (200 MG/KG)
     Route: 042
     Dates: start: 20101112, end: 20101115
  3. METHOTREXATE [Suspect]
     Indication: PROPHYLAXIS AGAINST GRAFT VERSUS HOST DISEASE
     Dosage: (7.4 MILLIGRAM)
     Route: 042
     Dates: start: 20101121, end: 20101124
  4. ALEMTUZUMAB (ALEMTUZUMAB) (0.3 MILLIGRAM (S)/ KILOGRAM) [Suspect]
     Indication: BONE MARROW FAILURE
  5. CYCLOSPORINE [Suspect]
     Indication: PROPHYLAXIS AGAINST GRAFT VERSUS HOST DISEASE
  6. MULTIPLE MCONCOMINANT MEDICATIONS [Concomitant]

REACTIONS (19)
  - SINUS HEADACHE [None]
  - CYTOMEGALOVIRUS INFECTION [None]
  - WEIGHT DECREASED [None]
  - DEEP VEIN THROMBOSIS [None]
  - PAIN [None]
  - URINARY TRACT INFECTION [None]
  - MUCOSAL INFLAMMATION [None]
  - POSTERIOR REVERSIBLE ENCEPHALOPATHY SYNDROME [None]
  - IDIOPATHIC PNEUMONIA SYNDROME [None]
  - PULMONARY VENO-OCCLUSIVE DISEASE [None]
  - FUNGAL INFECTION [None]
  - METAPNEUMOVIRUS INFECTION [None]
  - PNEUMONIA CYTOMEGALOVIRAL [None]
  - GASTROINTESTINAL TOXICITY [None]
  - MASTOID DISORDER [None]
  - RESPIRATORY ARREST [None]
  - PERIORBITAL OEDEMA [None]
  - FEBRILE NEUTROPENIA [None]
  - RESPIRATORY DISTRESS [None]
